FAERS Safety Report 7085550-4 (Version None)
Quarter: 2010Q4

REPORT INFORMATION
  Report Type: 
  Country: None (occurrence: None)
  Receive Date: 20101027
  Receipt Date: 20101012
  Transmission Date: 20110411
  Serious: Yes (Other)
  Sender: FDA-Public Use
  Company Number: AUR-APL-2010-02604

PATIENT
  Age: 58 Year
  Sex: Male
  Weight: 67.57 kg

DRUGS (7)
  1. SIMVASTATIN [Suspect]
     Indication: BLOOD CHOLESTEROL INCREASED
     Dosage: 40MG
  2. LISINOPRIL [Suspect]
     Indication: PRODUCT USED FOR UNKNOWN INDICATION
     Dosage: 10MG-DAILY
  3. METFORMIN [Suspect]
     Indication: PRODUCT USED FOR UNKNOWN INDICATION
     Dosage: 1000MG-BID
  4. CHANTIX [Suspect]
     Indication: SMOKING CESSATION THERAPY
     Dosage: 1MG-BID-ORAL
     Route: 048
     Dates: start: 20090301, end: 20090901
  5. XANAX [Suspect]
     Indication: PANIC ATTACK
     Dosage: 1MG, ORAL
     Route: 048
  6. TRAZODONE [Suspect]
     Indication: SLEEP DISORDER
     Dosage: 150MG-DAILY
  7. IRON [Suspect]
     Indication: PRODUCT USED FOR UNKNOWN INDICATION
     Dosage: 325MG

REACTIONS (2)
  - DRUG INTERACTION [None]
  - PARANOIA [None]
